FAERS Safety Report 4906242-0 (Version None)
Quarter: 2006Q1

REPORT INFORMATION
  Report Type: 
  Country: None (occurrence: None)
  Receive Date: 20060207
  Receipt Date: 20060131
  Transmission Date: 20060701
  Serious: Yes (Other)
  Sender: FDA-Public Use
  Company Number: 2006015612

PATIENT
  Age: 85 Year
  Sex: Female

DRUGS (10)
  1. LYRICA [Suspect]
     Indication: DIABETIC NEUROPATHY
     Dosage: 150 MG (50 MG, 3 IN 1 D), ORAL
     Route: 048
     Dates: start: 20060111, end: 20060118
  2. FUROSEMIDE [Concomitant]
  3. SPIRONOLACTONE [Concomitant]
  4. DIGOXIN [Concomitant]
  5. PERINDOPRIL (PERINDOPRIL) [Concomitant]
  6. GLICLAZIDE (GLICLAZIDE) [Concomitant]
  7. FOSAMAX [Concomitant]
  8. WARFARIN SODIUM [Concomitant]
  9. ZOCOR [Concomitant]
  10. DOCUSATE [Concomitant]

REACTIONS (2)
  - DIZZINESS [None]
  - FALL [None]
